FAERS Safety Report 6072014-X (Version None)
Quarter: 2009Q1

REPORT INFORMATION
  Report Type: 
  Country: None (occurrence: None)
  Receive Date: 20090205
  Receipt Date: 20090205
  Transmission Date: 20090719
  Serious: Yes (Life-Threatening, Hospitalization, Disabling, Other)
  Sender: FDA-Public Use
  Company Number: None

PATIENT
  Sex: Female
  Weight: 44.9061 kg

DRUGS (1)
  1. RECLAST [Suspect]
     Indication: OSTEOPOROSIS
     Dosage: ONE JAR IV DRIP
     Route: 041
     Dates: start: 20090127, end: 20090127

REACTIONS (6)
  - ABASIA [None]
  - ARTHRALGIA [None]
  - CONVULSION [None]
  - LOSS OF CONSCIOUSNESS [None]
  - MYALGIA [None]
  - VOMITING [None]
